FAERS Safety Report 6638067-2 (Version None)
Quarter: 2010Q1

REPORT INFORMATION
  Report Type: 
  Country: None (occurrence: None)
  Receive Date: 20100301
  Receipt Date: 20090127
  Transmission Date: 20100710
  Serious: Yes (Hospitalization)
  Sender: FDA-Public Use
  Company Number: RB-8829-2009

PATIENT
  Age: 55 Year
  Sex: Female

DRUGS (3)
  1. SUBOXONE [Suspect]
     Indication: DRUG DEPENDENCE
     Dosage: 14 MG SUBLINGUAL
     Route: 060
     Dates: start: 20081010
  2. PAXIL [Concomitant]
  3. ATIVAN [Concomitant]

REACTIONS (4)
  - BACK PAIN [None]
  - DIARRHOEA [None]
  - NAUSEA [None]
  - RHINORRHOEA [None]
